FAERS Safety Report 7276707-8 (Version None)
Quarter: 2011Q1

REPORT INFORMATION
  Report Type: 
  Country: None (occurrence: None)
  Receive Date: 20110204
  Receipt Date: 20110203
  Transmission Date: 20110831
  Serious: Yes (Death, Hospitalization)
  Sender: FDA-Public Use
  Company Number: PL-PFIZER INC-2006037088

PATIENT
  Age: 58 Year
  Sex: Male
  Weight: 62 kg

DRUGS (36)
  1. METOCLOPRAMIDE [Concomitant]
     Dosage: UNK
     Route: 042
     Dates: start: 20060122, end: 20060224
  2. HYDROCORTISONE [Concomitant]
     Dosage: UNK
     Route: 042
     Dates: start: 20060124, end: 20060224
  3. AMIZEPIN [Concomitant]
     Dosage: UNK
     Route: 048
     Dates: start: 20060128
  4. SEVREDOL [Concomitant]
     Dosage: UNK
     Route: 048
     Dates: start: 20060224
  5. LOPERAMIDE [Concomitant]
     Dosage: UNK
     Route: 048
     Dates: start: 20060303
  6. SOLUTIO RINGERI ^CIV^ [Concomitant]
     Dosage: UNK
     Route: 042
     Dates: start: 20060122, end: 20060224
  7. PERNAZINUM [Concomitant]
     Dosage: UNK
     Route: 048
     Dates: start: 20060128, end: 20060224
  8. HYDROXYZINE [Concomitant]
     Dosage: UNK
     Route: 030
     Dates: start: 20060128, end: 20060224
  9. CALCIUM [Concomitant]
     Dosage: UNK
     Route: 048
     Dates: start: 20060130
  10. EXACYL [Concomitant]
     Dosage: UNK
     Route: 042
     Dates: start: 20060122, end: 20060124
  11. CONTROLOC [Concomitant]
     Dosage: UNK
     Route: 042
     Dates: start: 20060122, end: 20060224
  12. CHLORPROMAZINE HYDROCHLORIDE [Concomitant]
     Dosage: UNK
     Route: 042
     Dates: start: 20060122, end: 20060224
  13. CITALOPRAM [Concomitant]
     Dosage: UNK
     Route: 048
     Dates: start: 20060128, end: 20060224
  14. FRAXIPARINE [Concomitant]
     Dosage: UNK
     Route: 058
     Dates: start: 20060128
  15. DURAGESIC-100 [Concomitant]
     Dosage: UNK
     Route: 062
     Dates: start: 20051001
  16. CYCLONAMINE [Concomitant]
     Route: 048
     Dates: start: 20060303
  17. ZOFRAN [Concomitant]
     Dosage: UNK
     Route: 042
     Dates: start: 20060122, end: 20060124
  18. NO-SPA [Concomitant]
     Dosage: UNK
     Route: 042
     Dates: start: 20060124, end: 20060224
  19. METRONIDAZOLE [Concomitant]
     Dosage: UNK
     Route: 042
     Dates: start: 20060124, end: 20060131
  20. FUROSEMIDE [Concomitant]
     Dosage: UNK
     Route: 048
     Dates: start: 20060121
  21. KETONAL [Concomitant]
     Dosage: UNK
     Route: 048
     Dates: start: 20060202
  22. SUNITINIB MALATE [Suspect]
     Dosage: 50 MG, 1X/DAY
     Route: 048
     Dates: start: 20060203, end: 20060214
  23. CYCLONAMINE [Concomitant]
     Dosage: UNK
     Route: 042
     Dates: start: 20060122, end: 20060124
  24. DEXTRAN INJ [Concomitant]
     Dosage: UNK
     Route: 042
     Dates: start: 20060301, end: 20060311
  25. PYRALGIN [Concomitant]
     Dosage: UNK
     Route: 048
     Dates: start: 20060124
  26. DEXTROSE [Concomitant]
     Dosage: UNK
     Route: 042
     Dates: start: 20060122, end: 20060202
  27. DEXTRAN INJ [Concomitant]
     Dosage: UNK
     Route: 042
     Dates: start: 20060122, end: 20060124
  28. KALDYUM [Concomitant]
     Dosage: UNK
     Route: 048
     Dates: start: 20060128
  29. POLPRAZOL [Concomitant]
     Dosage: UNK
     Route: 048
     Dates: start: 20060224
  30. SIRDALUD [Concomitant]
     Dosage: UNK
     Route: 048
     Dates: start: 20060224
  31. SUNITINIB MALATE [Suspect]
     Dosage: 50 MG, 1X/DAY
     Route: 048
     Dates: start: 20060228, end: 20060310
  32. EXACYL [Concomitant]
     Dosage: UNK
     Route: 048
     Dates: start: 20060303
  33. TIENAM [Concomitant]
     Dosage: UNK
     Route: 042
     Dates: start: 20060124, end: 20060131
  34. PARACETAMOL [Concomitant]
     Dosage: UNK
     Route: 048
     Dates: start: 20060202
  35. ESPUMISAN [Concomitant]
     Dosage: UNK
     Route: 048
     Dates: start: 20060224
  36. SUNITINIB MALATE [Suspect]
     Indication: RENAL CELL CARCINOMA
     Dosage: 50 MG, 1X/DAY
     Route: 048
     Dates: start: 20051123, end: 20060121

REACTIONS (5)
  - GASTROINTESTINAL HAEMORRHAGE [None]
  - DEHYDRATION [None]
  - CARDIOVASCULAR DISORDER [None]
  - VOMITING [None]
  - SUBILEUS [None]
